FAERS Safety Report 10058447 (Version 2)
Quarter: 2014Q2

REPORT INFORMATION
  Report Type: Report from Study
  Country: US (occurrence: US)
  Receive Date: 20140404
  Receipt Date: 20140408
  Transmission Date: 20141212
  Serious: Yes (Other)
  Sender: FDA-Public Use
  Company Number: PHEH2014US006349

PATIENT
  Age: 61 Year
  Sex: Male

DRUGS (10)
  1. GLEEVEC [Suspect]
     Indication: NEOPLASM MALIGNANT
     Dosage: 200 MG, QD
     Route: 048
     Dates: start: 20140301, end: 20140330
  2. GLEEVEC [Interacting]
     Indication: CAPILLARY LEAK SYNDROME
  3. AMLODIPINE [Interacting]
  4. ATENOLOL [Concomitant]
     Dosage: UNK UKN, UNK
  5. LOSARTAN POTASSIUM [Concomitant]
     Dosage: UNK UKN, UNK
  6. COUMADINE [Concomitant]
     Dosage: UNK UKN, UNK
  7. METFORMIN HCL [Concomitant]
     Dosage: UNK UKN, UNK
  8. CHLORTHALIDONE [Concomitant]
     Dosage: UNK UKN, UNK
  9. LEVOTHYROXINE [Concomitant]
     Dosage: UNK UKN, UNK
  10. LAMISIL [Concomitant]
     Dosage: UNK UKN, UNK

REACTIONS (2)
  - Drug interaction [Recovered/Resolved]
  - Hypotension [Recovered/Resolved]
